FAERS Safety Report 4282312-8 (Version None)
Quarter: 2004Q1

REPORT INFORMATION
  Report Type: 
  Country: None (occurrence: None)
  Receive Date: 20040112
  Receipt Date: 20031020
  Transmission Date: 20041129
  Serious: Yes (Hospitalization)
  Sender: FDA-Public Use
  Company Number: 346559

PATIENT
  Age: 44 Year
  Sex: Male

DRUGS (24)
  1. FUZEON [Suspect]
     Dosage: 90 MG 2 PER DAY; SUBCUTANEOUS
     Route: 058
     Dates: start: 20030805
  2. TENOFOVIR (TENOFOVIR) [Suspect]
     Indication: ACQUIRED IMMUNODEFICIENCY SYNDROME
     Dosage: 300 MG DAILY  ORAL
     Route: 048
  3. ATAZANAVIR SULFATE [Concomitant]
  4. RITONOVIR (RITONOVIR) [Concomitant]
  5. INVIRASE [Concomitant]
  6. EPIVIR [Concomitant]
  7. FAMVIR [Concomitant]
  8. AMARYL [Concomitant]
  9. BIAXIN [Concomitant]
  10. DIFLUCAN [Concomitant]
  11. MYCELEX [Concomitant]
  12. PENTAMIDINE INHALER (PENTAMIDINE) [Concomitant]
  13. COZAAR [Concomitant]
  14. PRAVACHOL [Concomitant]
  15. TRICOR [Concomitant]
  16. ASPIRIN [Concomitant]
  17. ZETIA [Concomitant]
  18. GLUCOPHAGE [Concomitant]
  19. AVANDIA [Concomitant]
  20. AMARYL [Concomitant]
  21. CELEXA (CTALOPRAM) [Concomitant]
  22. DOXEPIN (DOXEPIN HYDROCHLORIDE) [Concomitant]
  23. XANAX [Concomitant]
  24. RESTORIL [Concomitant]

REACTIONS (5)
  - ANURIA [None]
  - ELECTROCARDIOGRAM ABNORMAL [None]
  - GLOMERULONEPHRITIS FOCAL [None]
  - HYPERKALAEMIA [None]
  - NEPHRITIS INTERSTITIAL [None]
